FAERS Safety Report 15968747 (Version 1)
Quarter: 2019Q1

REPORT INFORMATION
  Report Type: Spontaneous
  Country: US (occurrence: US)
  Receive Date: 20190215
  Receipt Date: 20190215
  Transmission Date: 20190418
  Serious: No
  Sender: FDA-Public Use
  Company Number: US-TEVA-2019-US-1001791

PATIENT
  Age: 7 Year
  Sex: Female

DRUGS (1)
  1. TEVA AMOXICILLIN [Suspect]
     Active Substance: AMOXICILLIN
     Dosage: DOSE STRENGTH:  400 MG/5 ML
     Route: 065
     Dates: start: 20190113

REACTIONS (1)
  - Abdominal pain upper [Unknown]

NARRATIVE: CASE EVENT DATE: 20190113
